FAERS Safety Report 7617084-X (Version None)
Quarter: 2011Q3

REPORT INFORMATION
  Report Type: 
  Country: None (occurrence: None)
  Receive Date: 20110718
  Receipt Date: 20110705
  Transmission Date: 20111222
  Serious: Yes (Hospitalization)
  Sender: FDA-Public Use
  Company Number: US-ELI_LILLY_AND_COMPANY-US200911006550

PATIENT
  Sex: Female

DRUGS (5)
  1. FORTEO [Suspect]
     Dosage: 20 UG, QD
  2. ANALGESICS [Concomitant]
  3. FORTEO [Suspect]
     Dosage: 20 UG, DAILY (1/D)
  4. FORTEO [Suspect]
     Indication: OSTEOPOROSIS
     Dosage: 20 UG, DAILY (1/D)
     Dates: start: 20081001
  5. FORTEO [Suspect]
     Dosage: 20 UG, DAILY (1/D)

REACTIONS (5)
  - JOINT CREPITATION [None]
  - PAIN [None]
  - ARTHRALGIA [None]
  - INJECTION SITE ERYTHEMA [None]
  - KNEE ARTHROPLASTY [None]
